FAERS Safety Report 18331104 (Version 1)
Quarter: 2020Q3

REPORT INFORMATION
  Report Type: Spontaneous
  Country: BG (occurrence: BG)
  Receive Date: 20200930
  Receipt Date: 20200930
  Transmission Date: 20201103
  Serious: Yes (Life-Threatening, Hospitalization, Other)
  Sender: FDA-Public Use
  Company Number: BG-ASTRAZENECA-2020SF25803

PATIENT
  Sex: Male

DRUGS (14)
  1. OMEPRASOL IV [Concomitant]
  2. METFORMIN [Concomitant]
     Active Substance: METFORMIN HYDROCHLORIDE
  3. LOSARTAN. [Concomitant]
     Active Substance: LOSARTAN
  4. SINTROM [Concomitant]
     Active Substance: ACENOCOUMAROL
     Dosage: AS PER SCHEDULE
  5. CLOPIDOGREL [Concomitant]
     Active Substance: CLOPIDOGREL BISULFATE
  6. CORDARONE [Concomitant]
     Active Substance: AMIODARONE HYDROCHLORIDE
  7. BRILIQUE [Suspect]
     Active Substance: TICAGRELOR
     Route: 048
  8. ASPRIN [Concomitant]
     Active Substance: ASPIRIN
     Route: 048
  9. BISOPROLOL [Concomitant]
     Active Substance: BISOPROLOL
     Dosage: 5+2.5 MG
  10. LOSARTAN. [Concomitant]
     Active Substance: LOSARTAN
  11. HEPARIN [Concomitant]
     Active Substance: HEPARIN SODIUM
     Dosage: 3000 IU
  12. PRASUGREL. [Concomitant]
     Active Substance: PRASUGREL
  13. ATORVASTATIN [Concomitant]
     Active Substance: ATORVASTATIN
  14. ESOMEPRASOL [Concomitant]

REACTIONS (6)
  - Electrocardiogram abnormal [Unknown]
  - Cardiogenic shock [Unknown]
  - Coronary artery occlusion [Unknown]
  - Off label use [Unknown]
  - Atrioventricular block complete [Unknown]
  - Thrombosis [Unknown]
